FAERS Safety Report 15452086 (Version 1)
Quarter: 2018Q4

REPORT INFORMATION
  Report Type: Spontaneous
  Country: DK (occurrence: DK)
  Receive Date: 20181001
  Receipt Date: 20181001
  Transmission Date: 20190204
  Serious: Yes (Other)
  Sender: FDA-Public Use
  Company Number: DK-PFIZER INC-2018385373

PATIENT
  Age: 49 Year
  Sex: Female

DRUGS (11)
  1. OXAPAX [Suspect]
     Active Substance: OXAZEPAM
     Indication: ANXIETY
     Dosage: DOSE: VARYING
     Route: 048
     Dates: start: 20160331, end: 20170106
  2. RISPERDAL [Concomitant]
     Active Substance: RISPERIDONE
     Indication: BIPOLAR DISORDER
     Dosage: DOSE: 2-4 MG.
     Route: 048
     Dates: start: 20130107, end: 20130403
  3. TRUXAL [CHLORPROTHIXENE HYDROCHLORIDE] [Concomitant]
     Dosage: DOSE: 50-150 MG X 3. MANY BREAKS. PERMANENT MEDICATION 12AUG2013-27AUG2013. OTHERWISE IF NEEDED
     Dates: start: 20100415, end: 20150902
  4. ABILIFY [Suspect]
     Active Substance: ARIPIPRAZOLE
     Indication: BIPOLAR DISORDER
     Dosage: 15 MG, 1X/DAY
     Route: 048
     Dates: start: 20150902, end: 20151126
  5. LITAREX [LEVOFLOXACIN] [Suspect]
     Active Substance: LEVOFLOXACIN
     Indication: DEPRESSION
     Dosage: 3 DF, 1X/DAY (STRENGTH: 6 MMOL LI+)
     Route: 048
     Dates: start: 2013
  6. SEROQUEL [Suspect]
     Active Substance: QUETIAPINE FUMARATE
     Dosage: DOSE: VARYING
     Route: 048
     Dates: start: 20160215, end: 20170321
  7. IMOCLONE [Suspect]
     Active Substance: ZOPICLONE
     Indication: INSOMNIA
     Dosage: 3.75 MG, 1X/DAY
     Route: 048
     Dates: start: 20160329, end: 20170222
  8. OXAPAX [Suspect]
     Active Substance: OXAZEPAM
     Dosage: DOSE: VARYING
     Dates: start: 20170819, end: 20170905
  9. LYRICA [Suspect]
     Active Substance: PREGABALIN
     Indication: ANXIETY
     Dosage: 75 MG, 1X/DAY
     Route: 048
     Dates: start: 20160609, end: 20161111
  10. ABILIFY [Suspect]
     Active Substance: ARIPIPRAZOLE
     Dosage: 10 MG, 1X/DAY
     Route: 048
     Dates: start: 20170718, end: 20170727
  11. SEROQUEL [Suspect]
     Active Substance: QUETIAPINE FUMARATE
     Indication: DEPRESSION
     Dosage: DOSE: VARYING
     Route: 048
     Dates: start: 20110224, end: 20140611

REACTIONS (6)
  - Hepatic steatosis [Unknown]
  - Tinnitus [Not Recovered/Not Resolved]
  - Gastrointestinal disorder [Not Recovered/Not Resolved]
  - Liver injury [Not Recovered/Not Resolved]
  - Pancreatic injury [Not Recovered/Not Resolved]
  - Hypoacusis [Not Recovered/Not Resolved]

NARRATIVE: CASE EVENT DATE: 201410
